FAERS Safety Report 15936786 (Version 2)
Quarter: 2019Q1

REPORT INFORMATION
  Report Type: Spontaneous
  Country: JP (occurrence: JP)
  Receive Date: 20190208
  Receipt Date: 20190320
  Transmission Date: 20190417
  Serious: Yes (Death, Hospitalization, Other)
  Sender: FDA-Public Use
  Company Number: JP-SA-2019SA034413

PATIENT
  Age: 76 Year
  Sex: Female

DRUGS (2)
  1. ELPLAT [Suspect]
     Active Substance: OXALIPLATIN
     Indication: GASTRIC CANCER
     Dosage: QD , 2 CYCLE
     Route: 041
  2. TS-1 [Concomitant]
     Active Substance: GIMERACIL\OTERACIL\TEGAFUR
     Dosage: 2 CYCLES
     Route: 065

REACTIONS (11)
  - Autoimmune hepatitis [Unknown]
  - Scedosporium infection [Fatal]
  - Influenza B virus test positive [Unknown]
  - Lung infiltration [Unknown]
  - Asthenia [Unknown]
  - Septic shock [Unknown]
  - Pyrexia [Unknown]
  - Staphylococcal infection [Fatal]
  - Pneumonia bacterial [Unknown]
  - Candida infection [Unknown]
  - Condition aggravated [Unknown]
